FAERS Safety Report 8756942 (Version 1)
Quarter: 2012Q4

REPORT INFORMATION
  Report Type: 
  Country: US (occurrence: US)
  Receive Date: 20120828
  Receipt Date: 20120828
  Transmission Date: 20130627
  Serious: Yes (Hospitalization)
  Sender: FDA-Public Use
  Company Number: US-BAYER-2012-086887

PATIENT
  Age: 39 Year
  Sex: Female
  Weight: 65.35 kg

DRUGS (15)
  1. YASMIN [Suspect]
  2. CARISOPRODOL [Concomitant]
     Dosage: 350 mg, UNK
     Route: 048
  3. CLONAZEPAM [Concomitant]
     Indication: ANXIETY
     Dosage: 1 mg, UNK
     Route: 048
  4. HYDROCODONE W/APAP [Concomitant]
     Indication: PAIN
     Dosage: 7.5/750
  5. NEXIUM [Concomitant]
     Indication: GASTROOESOPHAGEAL REFLUX DISEASE
     Dosage: 40 mg, UNK
     Route: 048
  6. QUINARETIC [Concomitant]
     Indication: HYPERTENSION
     Dosage: 10 mg, UNK
     Route: 048
  7. QUINARETIC [Concomitant]
     Indication: HYPERTENSION
     Dosage: 12.5 mg, UNK
     Route: 048
  8. LEVOTHYROXINE SODIUM [Concomitant]
     Indication: HYPOTHYROIDISM
     Dosage: 150 mg, UNK
     Route: 048
  9. ZOLOFT [Concomitant]
     Dosage: 100 mg, UNK
     Route: 048
  10. TYLENOL PM [Concomitant]
  11. XANAX [Concomitant]
  12. AMBIEN [Concomitant]
  13. DECADRON [Concomitant]
  14. PAXIL [Concomitant]
     Dosage: 20 mg, QD
  15. LIPITOR [Concomitant]
     Dosage: 40 mg, QD

REACTIONS (1)
  - Haemorrhagic stroke [None]
